FAERS Safety Report 19180514 (Version 1)
Quarter: 2021Q2

REPORT INFORMATION
  Report Type: Spontaneous
  Country: US (occurrence: US)
  Receive Date: 20210426
  Receipt Date: 20210426
  Transmission Date: 20210717
  Serious: Yes (Hospitalization)
  Sender: FDA-Public Use
  Company Number: None

PATIENT
  Age: 55 Year
  Sex: Male
  Weight: 90 kg

DRUGS (1)
  1. BAMLANIVIMAB. [Suspect]
     Active Substance: BAMLANIVIMAB
     Indication: COVID-19
     Dosage: ?          OTHER FREQUENCY:ONCE;?
     Route: 042
     Dates: start: 20210415, end: 20210415

REACTIONS (8)
  - Hypotension [None]
  - Hypoxia [None]
  - COVID-19 pneumonia [None]
  - Tachycardia [None]
  - Syncope [None]
  - Pallor [None]
  - Shock [None]
  - Pulmonary embolism [None]

NARRATIVE: CASE EVENT DATE: 20210420
